FAERS Safety Report 8548436-1 (Version None)
Quarter: 2012Q3

REPORT INFORMATION
  Report Type: 
  Country: None (occurrence: None)
  Receive Date: 20120730
  Receipt Date: 20120716
  Transmission Date: 20120928
  Serious: Yes (Hospitalization, Other)
  Sender: FDA-Public Use
  Company Number: US-ACCORD-014187

PATIENT
  Age: 52 Year
  Sex: Male

DRUGS (6)
  1. BUPIVACAINE HCL [Concomitant]
     Dosage: 15 MG OF 0.75%
  2. HYDROCHLORTHIAZID [Concomitant]
     Indication: HYPERTENSION
  3. SIMVASTATIN [Suspect]
  4. ROPIVACAINE HYDROCHLORIDE [Concomitant]
     Indication: PAIN
     Dosage: 0.2% AT A RATE OF 6 CC PER HOUR WITH A PATIENT-CONTROLLED BOLUS OF 4 CC EVERY 12 MINUTES
  5. FENTANYL [Concomitant]
     Indication: PAIN
     Dosage: DOSE: 2 MCG/ML, EPIDURAL INFUSION
     Route: 008
  6. VALSARTAN [Concomitant]
     Indication: HYPERTENSION

REACTIONS (1)
  - COMPARTMENT SYNDROME [None]
